FAERS Safety Report 6564645-5 (Version None)
Quarter: 2010Q1

REPORT INFORMATION
  Report Type: 
  Country: None (occurrence: None)
  Receive Date: 20100201
  Receipt Date: 20100122
  Transmission Date: 20100710
  Serious: Yes (Other)
  Sender: FDA-Public Use
  Company Number: US-AMGEN-US376633

PATIENT
  Sex: Male
  Weight: 86.3 kg

DRUGS (15)
  1. NPLATE [Suspect]
     Indication: IDIOPATHIC THROMBOCYTOPENIC PURPURA
     Dates: start: 20090424, end: 20090915
  2. NPLATE [Suspect]
     Route: 058
     Dates: start: 20090424, end: 20090424
  3. NPLATE [Suspect]
     Route: 058
     Dates: start: 20090501, end: 20090501
  4. NPLATE [Suspect]
     Route: 058
     Dates: start: 20090508, end: 20090508
  5. NPLATE [Suspect]
     Route: 058
     Dates: start: 20090515, end: 20090612
  6. NPLATE [Suspect]
     Route: 058
     Dates: start: 20090619, end: 20090713
  7. NPLATE [Suspect]
     Route: 058
     Dates: start: 20090720, end: 20090720
  8. NPLATE [Suspect]
     Route: 058
     Dates: start: 20090727, end: 20090727
  9. NPLATE [Suspect]
     Route: 058
     Dates: start: 20090805, end: 20090805
  10. NPLATE [Suspect]
     Route: 058
     Dates: start: 20090810, end: 20090810
  11. NPLATE [Suspect]
     Route: 058
     Dates: start: 20090817, end: 20090817
  12. NPLATE [Suspect]
     Route: 058
     Dates: start: 20090824, end: 20090908
  13. NPLATE [Suspect]
     Route: 058
     Dates: start: 20090915, end: 20090915
  14. PLATELETS [Concomitant]
     Dates: start: 20090325
  15. RED BLOOD CELLS [Concomitant]
     Dates: start: 20090908

REACTIONS (11)
  - ARTHRALGIA [None]
  - BONE MARROW DISORDER [None]
  - CONTUSION [None]
  - DECREASED APPETITE [None]
  - FATIGUE [None]
  - LOCALISED INFECTION [None]
  - MYALGIA [None]
  - MYELODYSPLASTIC SYNDROME [None]
  - PANCYTOPENIA [None]
  - THERAPEUTIC RESPONSE DECREASED [None]
  - THROMBOCYTOPENIA [None]
